FAERS Safety Report 9301590 (Version 2)
Quarter: 2013Q2

REPORT INFORMATION
  Report Type: Spontaneous
  Country: US (occurrence: US)
  Receive Date: 20130521
  Receipt Date: 20130607
  Transmission Date: 20140414
  Serious: Yes (Hospitalization, Other)
  Sender: FDA-Public Use
  Company Number: US-ALEXION-A201301071

PATIENT
  Age: 16 Year
  Sex: Female
  Weight: 73.9 kg

DRUGS (3)
  1. SOLIRIS 300MG [Suspect]
     Indication: PAROXYSMAL NOCTURNAL HAEMOGLOBINURIA
     Dosage: 600 MG, QW X 4
     Route: 042
     Dates: start: 20120516
  2. SOLIRIS 300MG [Suspect]
     Dosage: 900 MG, Q2W
     Route: 042
     Dates: start: 2012
  3. FOLIC ACID [Concomitant]
     Dosage: 5 MG, QD
     Route: 048

REACTIONS (2)
  - Extravascular haemolysis [Recovered/Resolved]
  - Infectious mononucleosis [Recovered/Resolved]
